FAERS Safety Report 9954763 (Version 1)
Quarter: 2014Q1

REPORT INFORMATION
  Report Type: Other
  Country: US (occurrence: US)
  Receive Date: 20140304
  Receipt Date: 20140304
  Transmission Date: 20141002
  Serious: Yes (Other)
  Sender: FDA-Public Use
  Company Number: US-FRI-1000054730

PATIENT
  Sex: 0

DRUGS (1)
  1. CEFTAROLINE FOSAMIL [Suspect]

REACTIONS (1)
  - Leukopenia [Unknown]
